FAERS Safety Report 19709228 (Version 4)
Quarter: 2021Q4

REPORT INFORMATION
  Report Type: Report from Study
  Country: DE (occurrence: DE)
  Receive Date: 20210817
  Receipt Date: 20211214
  Transmission Date: 20220303
  Serious: Yes (Other)
  Sender: FDA-Public Use
  Company Number: DE-002147023-NVSC2020DE245573

PATIENT
  Sex: Female
  Weight: 65 kg

DRUGS (6)
  1. LETROZOLE [Suspect]
     Active Substance: LETROZOLE
     Indication: Breast cancer metastatic
     Dosage: 2.5 MG, QD (DAILY DOSE)
     Route: 048
     Dates: start: 20200420
  2. KISQALI [Suspect]
     Active Substance: RIBOCICLIB
     Indication: Breast cancer metastatic
     Dosage: 200 MG, QD (ADMINISTRATION SCHEME 21 DAYS INTAKE, 7 DAYS PAUSE) (DAILY DOSE)
     Route: 048
     Dates: start: 20200420
  3. KISQALI [Suspect]
     Active Substance: RIBOCICLIB
     Dosage: 600 MILLIGRAM, QD ((ADMINISTRATION SCHEME 21 DAYS INTAKE, 7 DAYS PAUSE) (DAILY DOSE)
     Route: 048
     Dates: start: 20201102, end: 20210418
  4. KISQALI [Suspect]
     Active Substance: RIBOCICLIB
     Dosage: 600 MILLIGRAM, QD ((ADMINISTRATION SCHEME 21 DAYS INTAKE, 7 DAYS PAUSE) (DAILY DOSE)
     Route: 048
     Dates: start: 20200420, end: 20200810
  5. KISQALI [Suspect]
     Active Substance: RIBOCICLIB
     Dosage: 600 MILLIGRAM, QD (ADMINISTRATION SCHEME 21 DAYS INTAKE, 7 DAYS PAUSE) (DAILY DOSE)
     Route: 048
     Dates: start: 20200907, end: 20201005
  6. KISQALI [Suspect]
     Active Substance: RIBOCICLIB
     Dosage: 600 MILLIGRAM
     Route: 048
     Dates: start: 20210525

REACTIONS (10)
  - Neutropenia [Recovered/Resolved]
  - Alanine aminotransferase increased [Recovered/Resolved]
  - Gamma-glutamyltransferase increased [Recovered/Resolved]
  - Lymphoedema [Recovered/Resolved]
  - Depression [Recovered/Resolved]
  - Aspartate aminotransferase increased [Not Recovered/Not Resolved]
  - Fatigue [Recovered/Resolved]
  - Hot flush [Recovered/Resolved]
  - Alopecia [Unknown]
  - Sleep disorder [Recovered/Resolved]

NARRATIVE: CASE EVENT DATE: 20200504
